FAERS Safety Report 5677742-3 (Version None)
Quarter: 2008Q1

REPORT INFORMATION
  Report Type: 
  Country: None (occurrence: None)
  Receive Date: 20080324
  Receipt Date: 20070716
  Transmission Date: 20080703
  Serious: No
  Sender: FDA-Public Use
  Company Number: US-ABBOTT-07P-163-0375599-00

PATIENT
  Age: 64 Year
  Sex: Female
  Weight: 87.168 kg

DRUGS (4)
  1. BIAXIN XL [Suspect]
     Indication: DRUG USE FOR UNKNOWN INDICATION
     Dates: start: 20070726
  2. BIAXIN XL [Suspect]
     Indication: EAR INFECTION
     Dates: start: 20050920
  3. BIAXIN XL [Suspect]
     Indication: BRONCHITIS
  4. BIAXIN XL [Suspect]
     Indication: SINUSITIS

REACTIONS (1)
  - DRUG HYPERSENSITIVITY [None]
